FAERS Safety Report 9602907 (Version 4)
Quarter: 2015Q1

REPORT INFORMATION
  Report Type: Spontaneous
  Country: US (occurrence: US)
  Receive Date: 20131007
  Receipt Date: 20150210
  Transmission Date: 20150721
  Serious: Yes (Hospitalization, Other)
  Sender: FDA-Public Use
  Company Number: US-MERCK-1310USA000334

PATIENT
  Sex: Female
  Weight: 86.17 kg

DRUGS (5)
  1. VITAMINS (UNSPECIFIED) [Concomitant]
     Active Substance: VITAMINS
     Dosage: UNK, QD
     Dates: start: 1998
  2. ALENDRONATE SODIUM. [Suspect]
     Active Substance: ALENDRONATE SODIUM
     Indication: OSTEOPOROSIS
     Dosage: 70 MG, UNK
     Route: 048
     Dates: start: 200612, end: 201112
  3. FOSAMAX [Suspect]
     Active Substance: ALENDRONATE SODIUM
     Indication: OSTEOPOROSIS
     Dosage: 70 MG, UNK
     Route: 048
  4. VITAMIN E [Concomitant]
     Active Substance: .ALPHA.-TOCOPHEROL
     Dosage: 400 MG, QD
     Dates: start: 1998
  5. CALCIUM (UNSPECIFIED) (+) VITAMIN D (UNSPECIFIED) [Concomitant]
     Active Substance: CALCIUM CARBONATE\VITAMIN D
     Dosage: CALCIUM 600 MG PLUS D 800 IU, QD
     Dates: start: 1998

REACTIONS (25)
  - Removal of internal fixation [Unknown]
  - Hypertension [Unknown]
  - Snoring [Unknown]
  - Poor quality sleep [Unknown]
  - Fatigue [Unknown]
  - Hip arthroplasty [Unknown]
  - Diabetes mellitus [Unknown]
  - Gastrooesophageal reflux disease [Unknown]
  - Fall [Unknown]
  - Drug ineffective [Unknown]
  - Rib fracture [Unknown]
  - Impaired healing [Unknown]
  - Blood cholesterol increased [Unknown]
  - Arthralgia [Unknown]
  - Exposure to toxic agent [Unknown]
  - Nasal congestion [Unknown]
  - Dyspnoea [Unknown]
  - Musculoskeletal chest pain [Unknown]
  - Intramedullary rod insertion [Unknown]
  - Intramedullary rod insertion [Unknown]
  - Osteopenia [Unknown]
  - Productive cough [Unknown]
  - Wheezing [Unknown]
  - Femur fracture [Unknown]
  - Cough [Unknown]

NARRATIVE: CASE EVENT DATE: 1997
